FAERS Safety Report 6893694-2 (Version None)
Quarter: 2010Q3

REPORT INFORMATION
  Report Type: 
  Country: None (occurrence: None)
  Receive Date: 20100731
  Receipt Date: 20091210
  Transmission Date: 20110219
  Serious: No
  Sender: FDA-Public Use
  Company Number: US-PFIZER INC-2008024424

PATIENT
  Sex: Male
  Weight: 77.3 kg

DRUGS (13)
  1. LYRICA [Suspect]
     Indication: NEUROPATHY PERIPHERAL
     Dosage: 50 MG, 1X/DAY
     Route: 048
     Dates: start: 20080101
  2. NEURONTIN [Suspect]
     Indication: NEUROPATHY PERIPHERAL
     Dosage: UNK
     Route: 048
     Dates: end: 20080101
  3. AMITRIPTYLINE HYDROCHLORIDE [Concomitant]
     Dosage: UNK
  4. ATENOLOL [Concomitant]
     Dosage: UNK
  5. DOXEPIN HCL [Concomitant]
     Dosage: UNK
  6. LOMOTIL [Concomitant]
     Dosage: UNK
  7. BACTRIM [Concomitant]
     Dosage: UNK
  8. ALLEGRA D 24 HOUR [Concomitant]
     Dosage: UNK
  9. AZITHROMYCIN [Concomitant]
     Dosage: UNK
  10. VISTARIL [Concomitant]
     Dosage: UNK
  11. TAMSULOSIN HYDROCHLORIDE [Concomitant]
     Dosage: UNK
  12. CYMBALTA [Concomitant]
     Dosage: UNK
  13. TESTOSTERONE [Concomitant]
     Dosage: UNK

REACTIONS (4)
  - DIARRHOEA [None]
  - DRUG INEFFECTIVE [None]
  - INSOMNIA [None]
  - WEIGHT INCREASED [None]
